FAERS Safety Report 7737405-7 (Version None)
Quarter: 2011Q3

REPORT INFORMATION
  Report Type: 
  Country: None (occurrence: None)
  Receive Date: 20110908
  Receipt Date: 20110523
  Transmission Date: 20111222
  Serious: No
  Sender: FDA-Public Use
  Company Number: US-BAYER-2011-019102

PATIENT
  Sex: Female

DRUGS (1)
  1. MIRENA [Suspect]
     Indication: MENORRHAGIA
     Dosage: 20 MCG/24HR, CONT
     Route: 015
     Dates: start: 20110120, end: 20110509

REACTIONS (19)
  - FEELING ABNORMAL [None]
  - PALPITATIONS [None]
  - CONSTIPATION [None]
  - ONYCHOCLASIS [None]
  - VISION BLURRED [None]
  - ALOPECIA [None]
  - ANXIETY [None]
  - IRRITABILITY [None]
  - HAIR TEXTURE ABNORMAL [None]
  - ABDOMINAL PAIN [None]
  - DRY SKIN [None]
  - TRICHORRHEXIS [None]
  - FEELING OF BODY TEMPERATURE CHANGE [None]
  - NERVOUSNESS [None]
  - HOT FLUSH [None]
  - NIGHT SWEATS [None]
  - NAIL DISORDER [None]
  - MOOD SWINGS [None]
  - THIRST [None]
